FAERS Safety Report 8041092-0 (Version None)
Quarter: 2012Q1

REPORT INFORMATION
  Report Type: 
  Country: None (occurrence: None)
  Receive Date: 20120109
  Receipt Date: 20111222
  Transmission Date: 20120608
  Serious: Yes (Hospitalization)
  Sender: FDA-Public Use
  Company Number: 2011-22439

PATIENT
  Age: 24 Year
  Sex: Female
  Weight: 63.9 kg

DRUGS (1)
  1. MICRONOR [Suspect]
     Indication: INVESTIGATION
     Dosage: 0.35 MG X1, ORAL
     Route: 048
     Dates: start: 20111221

REACTIONS (7)
  - ABDOMINAL PAIN [None]
  - OVARIAN ADENOMA [None]
  - HYPERGLYCAEMIA [None]
  - HYPOKALAEMIA [None]
  - HAEMORRHAGIC OVARIAN CYST [None]
  - FALLOPIAN TUBE TORSION [None]
  - OVARIAN TORSION [None]
